FAERS Safety Report 5852965-9 (Version None)
Quarter: 2008Q3

REPORT INFORMATION
  Report Type: 
  Country: None (occurrence: None)
  Receive Date: 20080814
  Receipt Date: 20080516
  Transmission Date: 20090109
  Serious: Yes (Hospitalization, Other)
  Sender: FDA-Public Use
  Company Number: WAES 0805USA03784

PATIENT

DRUGS (4)
  1. ISENTRESS [Suspect]
     Indication: HIV INFECTION
     Dosage: 400 MG/BID/PO
     Route: 048
  2. NORVIR [Suspect]
  3. VIREAD [Suspect]
  4. REYATAZ [Suspect]

REACTIONS (1)
  - STEVENS-JOHNSON SYNDROME [None]
